FAERS Safety Report 17547409 (Version 1)
Quarter: 2020Q1

REPORT INFORMATION
  Report Type: Spontaneous
  Country: US (occurrence: US)
  Receive Date: 20200316
  Receipt Date: 20200316
  Transmission Date: 20200409
  Serious: Yes (Other)
  Sender: FDA-Public Use
  Company Number: US-EPIC PHARMA LLC-2020EPC00095

PATIENT
  Age: 62 Year
  Sex: Female

DRUGS (1)
  1. GABAPENTIN. [Suspect]
     Active Substance: GABAPENTIN
     Indication: MUSCLE SPASMS
     Dosage: 100 MG, 2X/DAY
     Route: 065

REACTIONS (3)
  - Myoclonus [Recovered/Resolved]
  - Mental status changes [Recovered/Resolved]
  - Toxicity to various agents [Recovered/Resolved]
